FAERS Safety Report 14356260 (Version 1)
Quarter: 2018Q1

REPORT INFORMATION
  Report Type: Spontaneous
  Country: US (occurrence: US)
  Receive Date: 20180105
  Receipt Date: 20180105
  Transmission Date: 20180509
  Serious: No
  Sender: FDA-Public Use
  Company Number: US-ALLERGAN-1757826US

PATIENT
  Age: 50 Year
  Sex: Male

DRUGS (1)
  1. KYBELLA [Suspect]
     Active Substance: DEOXYCHOLIC ACID
     Indication: FAT TISSUE INCREASED
     Dosage: 3 VIALS
     Dates: start: 20170901

REACTIONS (3)
  - Application site plaque [Unknown]
  - Off label use [Unknown]
  - Skin ulcer [Unknown]
